FAERS Safety Report 5197318-4 (Version None)
Quarter: 2006Q4

REPORT INFORMATION
  Report Type: 
  Country: None (occurrence: None)
  Receive Date: 20061025
  Receipt Date: 20060418
  Transmission Date: 20070319
  Serious: Yes (Hospitalization, Other)
  Sender: FDA-Public Use
  Company Number: 1713747 / 2006 / 000004

PATIENT
  Sex: Male

DRUGS (1)
  1. STAY SAFE 2.5% DEX. LM/LC 2.5/3L, 5 PK [Suspect]
     Indication: RENAL FAILURE CHRONIC
     Dosage: INTRAPERITONEALLY
     Route: 033
     Dates: start: 20060401

REACTIONS (1)
  - PERITONITIS [None]
